FAERS Safety Report 24313828 (Version 8)
Quarter: 2025Q1

REPORT INFORMATION
  Report Type: Spontaneous
  Country: GB (occurrence: GB)
  Receive Date: 20240912
  Receipt Date: 20250306
  Transmission Date: 20250408
  Serious: Yes (Hospitalization, Other)
  Sender: MYLAN
  Company Number: GB-MYLANLABS-2024M1083194

PATIENT
  Sex: Female

DRUGS (2)
  1. CLOZARIL [Suspect]
     Active Substance: CLOZAPINE
     Indication: Schizophrenia
  2. LITHIUM [Concomitant]
     Active Substance: LITHIUM

REACTIONS (10)
  - Mental impairment [Unknown]
  - Neutropenia [Recovering/Resolving]
  - Leukopenia [Recovered/Resolved]
  - Eosinophilia [Unknown]
  - Laboratory test abnormal [Unknown]
  - Eosinophil count decreased [Not Recovered/Not Resolved]
  - Haemoglobin increased [Unknown]
  - Neutrophil count increased [Unknown]
  - White blood cell count increased [Unknown]
  - Treatment noncompliance [Unknown]

NARRATIVE: CASE EVENT DATE: 20250114
